FAERS Safety Report 13054410 (Version 2)
Quarter: 2019Q3

REPORT INFORMATION
  Report Type: Spontaneous
  Country: HT (occurrence: HT)
  Receive Date: 20161222
  Receipt Date: 20190711
  Transmission Date: 20191004
  Serious: Yes (Hospitalization)
  Sender: FDA-Public Use
  Company Number: HT-IMPAX LABORATORIES, INC-2016-IPXL-02410

PATIENT
  Age: 77 Year
  Sex: Male

DRUGS (2)
  1. ALBENZA [Suspect]
     Active Substance: ALBENDAZOLE
     Indication: FILARIASIS LYMPHATIC
     Dosage: 400 MILLIGRAM, SINGLE
     Route: 048
     Dates: start: 20161128, end: 20161128
  2. DIETHYLCARBAMAZINE [Suspect]
     Active Substance: DIETHYLCARBAMAZINE
     Indication: FILARIASIS LYMPHATIC
     Dosage: 6 MILLIGRAM/KILOGRAM, SINGLE
     Route: 048
     Dates: start: 20161128, end: 20161128

REACTIONS (7)
  - Agitation [Recovered/Resolved]
  - Anaemia [Recovered/Resolved]
  - Urinary tract infection [Recovered/Resolved]
  - Confusional state [Recovered/Resolved]
  - Hypertension [Recovered/Resolved]
  - Pyrexia [Recovered/Resolved]
  - Mental status changes [Recovered/Resolved]

NARRATIVE: CASE EVENT DATE: 20161201
